FAERS Safety Report 8154305-1 (Version None)
Quarter: 2012Q1

REPORT INFORMATION
  Report Type: 
  Country: None (occurrence: None)
  Receive Date: 20120103
  Receipt Date: 20110826
  Transmission Date: 20120608
  Serious: No
  Sender: FDA-Public Use
  Company Number: AE-2011-000982

PATIENT
  Age: 60 Year
  Sex: Female
  Weight: 90.7194 kg

DRUGS (7)
  1. LANTUS [Concomitant]
  2. HYDROCHLOROTHIAZIDE [Concomitant]
  3. INCIVEK [Suspect]
     Dosage: 2250 MG (750 MG,3 IN 1 D)
     Dates: start: 20110809
  4. DIOVAN HCT (CO-DIOVAN) [Concomitant]
  5. NEXIUM [Concomitant]
  6. PEGINTERFERON (PEGINTERFERON ALFA-2A) [Concomitant]
  7. RIBAVIRIN [Concomitant]

REACTIONS (7)
  - NAUSEA [None]
  - FEELING ABNORMAL [None]
  - INAPPROPRIATE SCHEDULE OF DRUG ADMINISTRATION [None]
  - DECREASED APPETITE [None]
  - PRURITUS GENERALISED [None]
  - DIARRHOEA [None]
  - ANORECTAL DISCOMFORT [None]
